FAERS Safety Report 4636194-2 (Version None)
Quarter: 2005Q2

REPORT INFORMATION
  Report Type: 
  Country: None (occurrence: None)
  Receive Date: 20050413
  Receipt Date: 20050413
  Transmission Date: 20051028
  Serious: Yes (Disabling)
  Sender: FDA-Public Use
  Company Number: None

PATIENT
  Age: 83 Year
  Sex: Female

DRUGS (4)
  1. FOSAMAX [Suspect]
     Indication: DRUG USE FOR UNKNOWN INDICATION
     Dosage: 70 MG PO WEEKLY
     Route: 048
     Dates: start: 20020101, end: 20040301
  2. LOVASTATIN [Concomitant]
  3. CALCITRIOL [Concomitant]
  4. PREDNISONE [Concomitant]

REACTIONS (1)
  - OSTEONECROSIS [None]
